FAERS Safety Report 13258984 (Version 1)
Quarter: 2017Q1

REPORT INFORMATION
  Report Type: Spontaneous
  Country: BE (occurrence: BE)
  Receive Date: 20170222
  Receipt Date: 20170222
  Transmission Date: 20170428
  Serious: Yes (Other)
  Sender: FDA-Public Use
  Company Number: BE-JNJFOC-20170220599

PATIENT
  Age: 55 Year
  Sex: Male

DRUGS (2)
  1. TEGRETOL [Concomitant]
     Active Substance: CARBAMAZEPINE
     Route: 065
  2. XARELTO [Suspect]
     Active Substance: RIVAROXABAN
     Indication: DEEP VEIN THROMBOSIS
     Route: 048

REACTIONS (1)
  - Toxic skin eruption [Unknown]
